FAERS Safety Report 13691624 (Version 2)
Quarter: 2017Q3

REPORT INFORMATION
  Report Type: Spontaneous
  Country: IT (occurrence: IT)
  Receive Date: 20170626
  Receipt Date: 20170705
  Transmission Date: 20171127
  Serious: Yes (Death, Disabling, Other)
  Sender: FDA-Public Use
  Company Number: IT-TEVA-780267ACC

PATIENT
  Age: 68 Year
  Sex: Female
  Weight: 80 kg

DRUGS (2)
  1. AMIKACINA TEVA - TEVA ITALIA S.R.L. [Suspect]
     Active Substance: AMIKACIN
     Indication: PSEUDOMONAS INFECTION
     Dosage: 500 MILLIGRAM DAILY;
     Route: 042
     Dates: start: 20170519, end: 20170525
  2. ZERBAXA [Suspect]
     Active Substance: CEFTOLOZANE SULFATE\TAZOBACTAM SODIUM
     Indication: PSEUDOMONAS INFECTION
     Route: 042
     Dates: start: 20170519, end: 20170530

REACTIONS (3)
  - Pyrexia [Unknown]
  - Chronic kidney disease [Fatal]
  - Sopor [Unknown]

NARRATIVE: CASE EVENT DATE: 20170601
